FAERS Safety Report 4854402-X (Version None)
Quarter: 2005Q4

REPORT INFORMATION
  Report Type: 
  Country: None (occurrence: None)
  Receive Date: 20051209
  Receipt Date: 20050928
  Transmission Date: 20060501
  Serious: Yes (Hospitalization, Other)
  Sender: FDA-Public Use
  Company Number: 20965

PATIENT
  Age: 61 Year
  Sex: Male
  Weight: 74 kg

DRUGS (1)
  1. CISPLATIN [Suspect]
     Indication: NON-SMALL CELL LUNG CANCER
     Dosage: 75 MG/M2 EVERY 3 WEEKS, INTR
     Route: 042
     Dates: start: 20050310

REACTIONS (4)
  - DEHYDRATION [None]
  - NAUSEA [None]
  - RENAL FAILURE [None]
  - VOMITING [None]
